FAERS Safety Report 12282089 (Version 2)
Quarter: 2016Q2

REPORT INFORMATION
  Report Type: Spontaneous
  Country: US (occurrence: US)
  Receive Date: 20160419
  Receipt Date: 20160509
  Transmission Date: 20160815
  Serious: No
  Sender: FDA-Public Use
  Company Number: US-PFIZER INC-2016221592

PATIENT
  Age: 53 Year
  Sex: Male
  Weight: 96 kg

DRUGS (3)
  1. VIAGRA [Suspect]
     Active Substance: SILDENAFIL CITRATE
     Indication: NERVE INJURY
     Dosage: 100 MG, UNK
  2. VIAGRA [Suspect]
     Active Substance: SILDENAFIL CITRATE
     Indication: CARDIOVASCULAR DISORDER
     Dosage: UNK UNK, AS NEEDED  (TOOK HALF OF THE VIAGRA DAY BEFORE YESTERDAY/OTHER HALF THE LAST NIGHT)
  3. VIAGRA [Suspect]
     Active Substance: SILDENAFIL CITRATE
     Indication: SEXUAL DYSFUNCTION

REACTIONS (2)
  - Expired product administered [Unknown]
  - Drug ineffective [Unknown]
